FAERS Safety Report 20697364 (Version 2)
Quarter: 2022Q2

REPORT INFORMATION
  Report Type: Report from Study
  Country: US (occurrence: US)
  Receive Date: 20220411
  Receipt Date: 20220610
  Transmission Date: 20220721
  Serious: Yes (Other)
  Sender: FDA-Public Use
  Company Number: US-BIOGEN-2022BI01111187

PATIENT
  Sex: Female

DRUGS (1)
  1. TYSABRI [Suspect]
     Active Substance: NATALIZUMAB
     Indication: Multiple sclerosis
     Route: 065
     Dates: start: 20171019

REACTIONS (5)
  - Seizure [Unknown]
  - Limb discomfort [Unknown]
  - Multiple sclerosis [Unknown]
  - Muscle twitching [Unknown]
  - Muscle spasms [Unknown]
